FAERS Safety Report 25647007 (Version 1)
Quarter: 2025Q3

REPORT INFORMATION
  Report Type: Report from Study
  Country: US (occurrence: US)
  Receive Date: 20250805
  Receipt Date: 20250805
  Transmission Date: 20251020
  Serious: Yes (Hospitalization)
  Sender: ALEXION PHARMACEUTICALS
  Company Number: US-AstraZeneca-CH-00924110A

PATIENT
  Sex: Male
  Weight: 86.182 kg

DRUGS (1)
  1. ACALABRUTINIB [Suspect]
     Active Substance: ACALABRUTINIB
     Indication: Chronic lymphocytic leukaemia
     Dosage: 100 MILLIGRAM, BID
     Dates: start: 20220521

REACTIONS (4)
  - Testicular swelling [Recovered/Resolved]
  - Cough [Not Recovered/Not Resolved]
  - Localised infection [Not Recovered/Not Resolved]
  - Fungal foot infection [Not Recovered/Not Resolved]
